FAERS Safety Report 16362376 (Version 1)
Quarter: 2019Q3

REPORT INFORMATION
  Report Type: Spontaneous
  Country: US (occurrence: US)
  Receive Date: 20190526
  Receipt Date: 20190526
  Transmission Date: 20191004
  Serious: Yes (Other)
  Sender: FDA-Public Use
  Company Number: None

PATIENT
  Age: 38 Year
  Sex: Female
  Weight: 74.25 kg

DRUGS (4)
  1. ZOLOFT [Concomitant]
     Active Substance: SERTRALINE HYDROCHLORIDE
  2. PHENERGAN [Concomitant]
     Active Substance: PROMETHAZINE HYDROCHLORIDE
  3. CHLORZOXAZONE. [Concomitant]
     Active Substance: CHLORZOXAZONE
  4. EMGALITY [Suspect]
     Active Substance: GALCANEZUMAB-GNLM
     Indication: MIGRAINE
     Dosage: ?          QUANTITY:1 INJECTION(S);OTHER FREQUENCY:1 DAY PER MONTH;?
     Route: 058
     Dates: start: 20190401, end: 20190508

REACTIONS (8)
  - Palpitations [None]
  - Headache [None]
  - Disturbance in attention [None]
  - Hot flush [None]
  - Constipation [None]
  - Depression [None]
  - Anxiety [None]
  - Amnesia [None]

NARRATIVE: CASE EVENT DATE: 20190510
